FAERS Safety Report 13454848 (Version 1)
Quarter: 2017Q2

REPORT INFORMATION
  Report Type: Spontaneous
  Country: US (occurrence: US)
  Receive Date: 20170419
  Receipt Date: 20170419
  Transmission Date: 20170830
  Serious: Yes (Hospitalization, Disabling)
  Sender: FDA-Public Use
  Company Number: PHEH2017US010666

PATIENT
  Age: 56 Year
  Sex: Female
  Weight: 50.4 kg

DRUGS (1)
  1. COSENTYX [Suspect]
     Active Substance: SECUKINUMAB
     Indication: PSORIASIS
     Dosage: UNK UNK, QMO (EVERY 4 WEEKS)
     Route: 058

REACTIONS (15)
  - Haematochezia [Unknown]
  - Pain in extremity [Unknown]
  - Pyrexia [Unknown]
  - Limb discomfort [Unknown]
  - Influenza [Unknown]
  - Back pain [Unknown]
  - Alopecia [Unknown]
  - Headache [Unknown]
  - Weight decreased [Unknown]
  - Eating disorder [Unknown]
  - Rhinorrhoea [Unknown]
  - Chills [Unknown]
  - Ear pain [Unknown]
  - Gait disturbance [Unknown]
  - Cough [Unknown]

NARRATIVE: CASE EVENT DATE: 201512
